FAERS Safety Report 5902456-1 (Version None)
Quarter: 2008Q3

REPORT INFORMATION
  Report Type: 
  Country: None (occurrence: None)
  Receive Date: 20080925
  Receipt Date: 20080909
  Transmission Date: 20090109
  Serious: Yes (Hospitalization)
  Sender: FDA-Public Use
  Company Number: 2008BI023281

PATIENT
  Age: 49 Year
  Sex: Female

DRUGS (2)
  1. TYSABRI [Suspect]
     Indication: MULTIPLE SCLEROSIS
     Dosage: 300 MG;QM;IV
     Route: 042
     Dates: start: 20080611
  2. BACLOFEN [Concomitant]

REACTIONS (11)
  - APNOEIC ATTACK [None]
  - CARBON DIOXIDE INCREASED [None]
  - CONVULSION [None]
  - DYSPNOEA [None]
  - EYE MOVEMENT DISORDER [None]
  - HYPOVENTILATION [None]
  - LOSS OF CONSCIOUSNESS [None]
  - NYSTAGMUS [None]
  - RESPIRATORY DISTRESS [None]
  - SOMNOLENCE [None]
  - UNRESPONSIVE TO STIMULI [None]
